FAERS Safety Report 5467598-6 (Version None)
Quarter: 2007Q3

REPORT INFORMATION
  Report Type: 
  Country: None (occurrence: None)
  Receive Date: 20070921
  Receipt Date: 20070907
  Transmission Date: 20080115
  Serious: Yes (Hospitalization, Other)
  Sender: FDA-Public Use
  Company Number: 2007VX002300

PATIENT
  Age: 57 Year
  Sex: Female

DRUGS (4)
  1. INFERGEN [Suspect]
     Indication: HEPATITIS C
     Dosage: 15 UG;QD;SC
     Route: 058
     Dates: start: 20070316
  2. RIBAVIRIN [Suspect]
     Indication: HEPATITIS C
     Dosage: 600 MG; BID; PO
     Route: 048
     Dates: start: 20070316
  3. ALLEGRA [Concomitant]
  4. AMBIEN CR [Concomitant]

REACTIONS (3)
  - BLOOD POTASSIUM DECREASED [None]
  - CELLULITIS [None]
  - PANCYTOPENIA [None]
